FAERS Safety Report 9928778 (Version 2)
Quarter: 2014Q3

REPORT INFORMATION
  Report Type: Spontaneous
  Country: JP (occurrence: JP)
  Receive Date: 20140227
  Receipt Date: 20140909
  Transmission Date: 20150326
  Serious: Yes (Disabling, Other)
  Sender: FDA-Public Use
  Company Number: JP-TAKEDA-2014TEU001615

PATIENT
  Age: 76 Year
  Sex: Male

DRUGS (11)
  1. PACETCOOL [Concomitant]
     Active Substance: CEFOTIAM HYDROCHLORIDE
     Indication: BLADDER CANCER
     Dosage: 1 G, BID
     Dates: start: 20130725, end: 20130726
  2. OMEPRAZOLE. [Concomitant]
     Active Substance: OMEPRAZOLE
     Indication: BLADDER CANCER
     Dosage: 20 MG, BID
     Dates: start: 20130725, end: 20130726
  3. BANAN [Concomitant]
     Active Substance: CEFPODOXIME PROXETIL
     Indication: PYREXIA
  4. FERROMIA                           /00023516/ [Concomitant]
     Active Substance: FERROUS CITRATE
     Indication: ANAEMIA
  5. CALONAL [Concomitant]
     Active Substance: ACETAMINOPHEN
     Indication: BLADDER CANCER
     Dosage: 400 MG, TID
     Dates: start: 20130726, end: 20130815
  6. RED BLOOD CELLS, CONCENTRATED [Concomitant]
     Active Substance: HUMAN RED BLOOD CELL
  7. PLASMA, FRESH FROZEN [Concomitant]
     Active Substance: HUMAN PLASMA
  8. MAGLAX [Concomitant]
     Active Substance: MAGNESIUM OXIDE
     Indication: BLADDER CANCER
     Dosage: 330 MG, TID
     Dates: start: 20130726, end: 20130815
  9. BANAN [Concomitant]
     Active Substance: CEFPODOXIME PROXETIL
     Indication: BLADDER CANCER
     Dosage: 100 MG, BID
     Dates: start: 20130808, end: 20130808
  10. TACHOSIL [Suspect]
     Active Substance: FIBRINOGEN HUMAN\THROMBIN HUMAN
     Indication: PROPHYLAXIS
     Dosage: 1SHEET /1DAY
     Route: 065
     Dates: start: 20130725
  11. FERROMIA                           /00023516/ [Concomitant]
     Active Substance: FERROUS CITRATE
     Indication: BLADDER CANCER
     Dosage: 100 MG, QD
     Dates: start: 20130730, end: 20130815

REACTIONS (1)
  - Urinary tract infection [Recovering/Resolving]

NARRATIVE: CASE EVENT DATE: 20130807
